FAERS Safety Report 9266307 (Version 4)
Quarter: 2013Q4

REPORT INFORMATION
  Report Type: Spontaneous
  Country: US (occurrence: US)
  Receive Date: 20130502
  Receipt Date: 20131008
  Transmission Date: 20140711
  Serious: Yes (Other)
  Sender: FDA-Public Use
  Company Number: US-JNJFOC-20130416599

PATIENT
  Age: 26 Year
  Sex: Female

DRUGS (1)
  1. TOPOMAX [Suspect]
     Indication: MIGRAINE
     Route: 048
     Dates: start: 200808, end: 200810

REACTIONS (3)
  - Premature delivery [Recovered/Resolved]
  - Exposure during pregnancy [Recovered/Resolved]
  - Pre-eclampsia [Unknown]
